FAERS Safety Report 6173576-4 (Version None)
Quarter: 2009Q2

REPORT INFORMATION
  Report Type: 
  Country: None (occurrence: None)
  Receive Date: 20090430
  Receipt Date: 20090428
  Transmission Date: 20091009
  Serious: Yes (Life-Threatening)
  Sender: FDA-Public Use
  Company Number: A0780998A

PATIENT
  Age: 21 Year
  Sex: Female

DRUGS (3)
  1. ALLI [Suspect]
     Dates: start: 20090402
  2. METFORMIN HCL [Concomitant]
     Route: 048
  3. NUVARING [Concomitant]
     Route: 015
     Dates: start: 20090425

REACTIONS (2)
  - DIARRHOEA [None]
  - HAEMATOCHEZIA [None]
